FAERS Safety Report 17666407 (Version 1)
Quarter: 2020Q2

REPORT INFORMATION
  Report Type: Spontaneous
  Country: US (occurrence: US)
  Receive Date: 20200414
  Receipt Date: 20200414
  Transmission Date: 20200713
  Serious: No
  Sender: FDA-Public Use
  Company Number: US-SOLARIS-PHARMA CORPORATION-2020RIS00120

PATIENT
  Age: 68 Year
  Sex: Female
  Weight: 58.96 kg

DRUGS (7)
  1. CLOBETASOL PROPIONATE. [Suspect]
     Active Substance: CLOBETASOL PROPIONATE
     Indication: ECZEMA
     Dosage: 1 DOSAGE UNITS, ONCE, JUST ENOUGH TO COVER DOTS THE SIZE OF A LEAD OF A PENCIL AND 2X2 DOT AREA
     Route: 061
     Dates: start: 20200310
  2. FISH OIL [Concomitant]
     Active Substance: FISH OIL
  3. ILADA [Concomitant]
     Indication: COLITIS ULCERATIVE
  4. AMLODIPINE [Concomitant]
     Active Substance: AMLODIPINE BESYLATE
     Indication: HYPERTENSION
  5. VITAMIN E [Concomitant]
     Active Substance: .ALPHA.-TOCOPHEROL
  6. ATORVASTASTIN [Concomitant]
     Indication: BLOOD CHOLESTEROL INCREASED
  7. VITAMIN D [Concomitant]
     Active Substance: VITAMIN D NOS

REACTIONS (2)
  - Skin discolouration [Recovered/Resolved]
  - Skin hypopigmentation [Recovered/Resolved]

NARRATIVE: CASE EVENT DATE: 20200311
